FAERS Safety Report 6599726-3 (Version None)
Quarter: 2010Q1

REPORT INFORMATION
  Report Type: 
  Country: None (occurrence: None)
  Receive Date: 20100224
  Receipt Date: 20100212
  Transmission Date: 20100710
  Serious: Yes (Hospitalization, Other)
  Sender: FDA-Public Use
  Company Number: FR-ELI_LILLY_AND_COMPANY-FR201002003439

PATIENT
  Sex: Male

DRUGS (15)
  1. HUMALOG [Suspect]
     Indication: TYPE 2 DIABETES MELLITUS
     Dosage: 5 IU, 2/D
     Route: 058
     Dates: end: 20090402
  2. INSULATARD [Concomitant]
     Dosage: 42 IU, 2/D
     Route: 058
  3. CRESTOR [Concomitant]
     Dosage: 10 MG, DAILY (1/D)
     Route: 048
  4. AMLOR [Concomitant]
     Dosage: 5 MG, DAILY (1/D)
     Route: 048
  5. LASILIX [Concomitant]
     Dosage: 0.5 D/F, DAILY (1/D)
     Route: 048
  6. ALLOPURINOL [Concomitant]
     Dosage: 200 MG, DAILY (1/D)
     Route: 048
  7. PERMIXON [Concomitant]
     Dosage: 160 MG, DAILY (1/D)
     Route: 048
  8. TAMSULOSIN HCL [Concomitant]
     Dosage: 1 D/F, DAILY (1/D)
     Route: 048
  9. PREVISCAN [Concomitant]
     Dosage: 0.75 D/F, DAILY (1/D)
     Route: 048
  10. KENZEN [Concomitant]
     Dosage: 8 MG, 2/D
     Route: 048
  11. TRIATEC [Concomitant]
     Dosage: 10 MG, DAILY (1/D)
     Route: 048
  12. DIFFU K [Concomitant]
     Dosage: 2 D/F, DAILY (1/D)
     Route: 065
     Dates: end: 20090403
  13. INNOVAR [Concomitant]
     Dosage: UNK, UNKNOWN
     Route: 065
  14. BRONCHODUAL [Concomitant]
     Dosage: UNK, UNKNOWN
     Route: 065
  15. NOCTAMIDE [Concomitant]
     Dosage: UNK, UNKNOWN
     Route: 065

REACTIONS (8)
  - ANAEMIA [None]
  - HYPOGLYCAEMIA [None]
  - LIPODYSTROPHY ACQUIRED [None]
  - MALAISE [None]
  - MUSCLE SPASMS [None]
  - NEUROPATHY PERIPHERAL [None]
  - OEDEMA PERIPHERAL [None]
  - RENAL FAILURE [None]
